FAERS Safety Report 5965771-1 (Version None)
Quarter: 2008Q4

REPORT INFORMATION
  Report Type: 
  Country: None (occurrence: None)
  Receive Date: 20081120
  Receipt Date: 20080117
  Transmission Date: 20090506
  Serious: Yes (Other)
  Sender: FDA-Public Use
  Company Number: 44442

PATIENT
  Age: 10 Year
  Sex: Female

DRUGS (3)
  1. RIFAMPIN [Suspect]
     Indication: OSTEOMYELITIS
     Dosage: 300MG - EVERY 12 HOURS - IV
     Route: 042
     Dates: start: 20080114
  2. NAFCILLIN SODIUM [Concomitant]
  3. CLINDAMYCIN HCL [Concomitant]

REACTIONS (1)
  - HYPOAESTHESIA [None]
